FAERS Safety Report 5093981-7 (Version None)
Quarter: 2006Q3

REPORT INFORMATION
  Report Type: 
  Country: None (occurrence: None)
  Receive Date: 20060831
  Receipt Date: 20060802
  Transmission Date: 20061208
  Serious: Yes (Life-Threatening, Hospitalization)
  Sender: FDA-Public Use
  Company Number: DE-AVENTIS-200612285DE

PATIENT
  Age: 78 Year
  Sex: Male

DRUGS (7)
  1. AMARYL [Suspect]
     Indication: DIABETES MELLITUS NON-INSULIN-DEPENDENT
     Route: 048
     Dates: start: 20030801, end: 20060707
  2. LANTUS [Concomitant]
     Indication: DIABETES MELLITUS
     Route: 058
  3. LORZAAR [Concomitant]
     Indication: HYPERTENSION
     Dosage: DOSE: 50/12.5
     Route: 048
  4. SOTALOL HCL [Concomitant]
     Indication: EXTRASYSTOLES
     Route: 048
  5. SIMVASTATIN [Concomitant]
     Indication: HYPERCHOLESTEROLAEMIA
     Route: 048
  6. ASPIRIN [Concomitant]
     Route: 048
  7. CARMEN [Concomitant]
     Indication: HYPERTENSION
     Route: 048

REACTIONS (4)
  - CEREBRAL DISORDER [None]
  - HYPOGLYCAEMIA [None]
  - MUSCLE SPASMS [None]
  - PSYCHOTIC DISORDER [None]
